FAERS Safety Report 5003222-4 (Version None)
Quarter: 2006Q2

REPORT INFORMATION
  Report Type: 
  Country: None (occurrence: None)
  Receive Date: 20060516
  Receipt Date: 20060224
  Transmission Date: 20061013
  Serious: Yes (Congenital Anomaly)
  Sender: FDA-Public Use
  Company Number: GB-BRISTOL-MYERS SQUIBB COMPANY-13299722

PATIENT

DRUGS (1)
  1. ABILIFY [Suspect]
     Route: 064

REACTIONS (10)
  - ANAL ATRESIA [None]
  - ATRIAL SEPTAL DEFECT [None]
  - CARDIAC MURMUR [None]
  - CONGENITAL CYSTIC KIDNEY DISEASE [None]
  - DRUG EXPOSURE DURING PREGNANCY [None]
  - HIGH-PITCHED CRYING [None]
  - MULTIPLE CONGENITAL ABNORMALITIES [None]
  - SYNDACTYLY [None]
  - UMBILICAL CORD ABNORMALITY [None]
  - VENTRICULAR SEPTAL DEFECT [None]
